FAERS Safety Report 6241138-6 (Version None)
Quarter: 2009Q2

REPORT INFORMATION
  Report Type: 
  Country: None (occurrence: None)
  Receive Date: 20090619
  Receipt Date: 20090619
  Transmission Date: 20091009
  Serious: No
  Sender: FDA-Public Use
  Company Number: None

PATIENT
  Age: 59 Year
  Sex: Female
  Weight: 74.8435 kg

DRUGS (2)
  1. ZICAM NASAL SWABS ZICAM [Suspect]
     Indication: HYPERSENSITIVITY
     Dosage: 1 GEL SWAB 2X DAILY
     Dates: start: 20080801, end: 20090601
  2. ZICAM NASAL SWABS ZICAM [Suspect]
     Indication: NASAL CONGESTION
     Dosage: 1 GEL SWAB 2X DAILY
     Dates: start: 20080801, end: 20090601

REACTIONS (1)
  - ANOSMIA [None]
